FAERS Safety Report 16725231 (Version 1)
Quarter: 2019Q4

REPORT INFORMATION
  Report Type: Spontaneous
  Country: US (occurrence: US)
  Receive Date: 20190820
  Receipt Date: 20190820
  Transmission Date: 20200122
  Serious: Yes (Death)
  Sender: FDA-Public Use
  Company Number: None

PATIENT
  Sex: Female

DRUGS (5)
  1. METOPROLOL TARTRATE. [Concomitant]
     Active Substance: METOPROLOL TARTRATE
  2. LASIX, METAMUCIL [Concomitant]
  3. IMODIUM A-D, KLOR-CON [Concomitant]
  4. CAPECITABINE. [Suspect]
     Active Substance: CAPECITABINE
     Indication: RECTAL CANCER
     Dosage: ?          OTHER FREQUENCY:BID FOR 7 DAYS;?
     Route: 048
     Dates: start: 20190411
  5. AMLODIPINE, GLIMEPIRIDE [Concomitant]

REACTIONS (1)
  - Death [None]
